FAERS Safety Report 6528602-7 (Version None)
Quarter: 2010Q1

REPORT INFORMATION
  Report Type: 
  Country: None (occurrence: None)
  Receive Date: 20100106
  Receipt Date: 20091229
  Transmission Date: 20100710
  Serious: Yes (Death, Hospitalization)
  Sender: FDA-Public Use
  Company Number: US-BRISTOL-MYERS SQUIBB COMPANY-14838700

PATIENT
  Age: 80 Year
  Sex: Male

DRUGS (21)
  1. PACLITAXEL [Suspect]
     Indication: NON-SMALL CELL LUNG CANCER
     Dosage: EVERY 3 WEEKS. 24SEP09-UNK
     Route: 042
     Dates: start: 20090922, end: 20090922
  2. CARBOPLATIN [Suspect]
     Indication: NON-SMALL CELL LUNG CANCER
     Dosage: EVERY 3 WEEKS. 24SEP09-UNK
     Route: 042
     Dates: start: 20090922, end: 20090922
  3. CP-751,871 [Suspect]
     Indication: NON-SMALL CELL LUNG CANCER
     Dosage: EVERY 3 WEEKS. 24SEP09-UNK
     Route: 042
     Dates: start: 20090922, end: 20090922
  4. ADVAIR DISKUS 100/50 [Concomitant]
     Indication: LUNG DISORDER
     Dosage: 1 DF = 500/50NG, 1 PUFF
     Dates: start: 20071121
  5. FLONASE [Concomitant]
     Indication: HYPERSENSITIVITY
     Dosage: TABS
     Dates: start: 20071121
  6. LASIX [Concomitant]
     Indication: DIURETIC THERAPY
     Dosage: TABS
     Dates: start: 20071121
  7. METOPROLOL TARTRATE [Concomitant]
     Indication: ARRHYTHMIA
     Dosage: TABS
     Dates: start: 20080104
  8. MIRALAX [Concomitant]
     Indication: CONSTIPATION
     Dosage: 4-8 OUNCES WATER
  9. PLAVIX [Concomitant]
     Indication: COAGULOPATHY
     Dates: start: 20071205
  10. POTASSIUM CHLORIDE [Concomitant]
     Indication: SUPPLEMENTATION THERAPY
     Dates: start: 20071121
  11. MULTI-VITAMINS [Concomitant]
     Dosage: 1 DF = TAB
     Dates: start: 20071121
  12. SINGULAIR [Concomitant]
     Indication: LUNG DISORDER
     Dates: start: 20071121
  13. SPIRIVA [Concomitant]
     Dosage: 1 DF = 1 PUFF
     Route: 055
     Dates: start: 20070212
  14. TYLENOL (CAPLET) [Concomitant]
     Indication: PAIN
  15. VIAGRA [Concomitant]
     Indication: ERECTILE DYSFUNCTION
  16. SODIUM CHLORIDE [Concomitant]
     Indication: FLUID REPLACEMENT
     Dosage: 0.9%
     Dates: start: 20091001, end: 20091002
  17. MORPHINE SULFATE [Concomitant]
     Indication: PAIN
     Dates: start: 20091001, end: 20091006
  18. DEXAMETHASONE [Concomitant]
     Indication: PREMEDICATION
     Dates: start: 20090922, end: 20090922
  19. CIMETIDINE [Concomitant]
     Indication: PREMEDICATION
     Dates: start: 20090922, end: 20090922
  20. ONDANSETRON [Concomitant]
     Indication: PREMEDICATION
     Dates: start: 20090922, end: 20090922
  21. DIPHENHYDRAMINE HCL [Concomitant]
     Indication: PREMEDICATION
     Dates: start: 20090922, end: 20090922

REACTIONS (1)
  - PNEUMONIA [None]
